FAERS Safety Report 12932923 (Version 1)
Quarter: 2016Q4

REPORT INFORMATION
  Report Type: Spontaneous
  Country: FR (occurrence: FR)
  Receive Date: 20161111
  Receipt Date: 20161111
  Transmission Date: 20170207
  Serious: Yes (Other)
  Sender: FDA-Public Use
  Company Number: FR-ROCHE-1852763

PATIENT
  Age: 49 Year
  Sex: Male

DRUGS (4)
  1. ZELBORAF [Suspect]
     Active Substance: VEMURAFENIB
     Indication: METASTATIC MALIGNANT MELANOMA
     Route: 048
     Dates: start: 20120701, end: 20120712
  2. ZELBORAF [Suspect]
     Active Substance: VEMURAFENIB
     Route: 048
     Dates: start: 20160803, end: 20160930
  3. COTELLIC [Suspect]
     Active Substance: COBIMETINIB
     Indication: METASTATIC MALIGNANT MELANOMA
     Route: 048
     Dates: start: 20120701, end: 20120712
  4. COTELLIC [Suspect]
     Active Substance: COBIMETINIB
     Route: 048
     Dates: start: 20160803, end: 20160915

REACTIONS (1)
  - Chorioretinitis [Not Recovered/Not Resolved]

NARRATIVE: CASE EVENT DATE: 201608
